FAERS Safety Report 15437262 (Version 2)
Quarter: 2018Q4

REPORT INFORMATION
  Report Type: Spontaneous
  Country: US (occurrence: US)
  Receive Date: 20180927
  Receipt Date: 20181231
  Transmission Date: 20190204
  Serious: No
  Sender: FDA-Public Use
  Company Number: US-CLOVIS ONCOLOGY-CLO-2018-001055

PATIENT
  Sex: Female

DRUGS (4)
  1. RUBRACA [Suspect]
     Active Substance: RUCAPARIB CAMSYLATE
     Indication: OVARIAN CANCER
     Dosage: 300 MG, BID
     Route: 065
     Dates: start: 20180713, end: 2018
  2. RUBRACA [Suspect]
     Active Substance: RUCAPARIB CAMSYLATE
     Indication: PULMONARY MASS
     Dosage: 600 MG, BID
     Dates: start: 20180718, end: 2018
  3. RUBRACA [Suspect]
     Active Substance: RUCAPARIB CAMSYLATE
     Indication: METASTATIC NEOPLASM
  4. RUBRACA [Suspect]
     Active Substance: RUCAPARIB CAMSYLATE
     Indication: BLADDER NEOPLASM
     Dosage: 400 MG, BID
     Dates: start: 2018, end: 20181025

REACTIONS (7)
  - Asthenia [Recovered/Resolved]
  - Malignant neoplasm progression [Unknown]
  - Nausea [Unknown]
  - Therapy partial responder [Unknown]
  - Malaise [Recovered/Resolved]
  - Hypophagia [Recovered/Resolved]
  - Diarrhoea [Unknown]

NARRATIVE: CASE EVENT DATE: 2018
